FAERS Safety Report 24063908 (Version 4)
Quarter: 2025Q3

REPORT INFORMATION
  Report Type: Report from Study
  Country: US (occurrence: US)
  Receive Date: 20240709
  Receipt Date: 20250801
  Transmission Date: 20251020
  Serious: Yes (Other)
  Sender: TAKEDA
  Company Number: US-TAKEDA-2022TUS016360

PATIENT
  Age: 74 Year
  Sex: Male
  Weight: 82 kg

DRUGS (19)
  1. PONATINIB [Suspect]
     Active Substance: PONATINIB
     Indication: Chronic lymphocytic leukaemia (in remission)
     Dosage: 15 MILLIGRAM, QD
  2. PONATINIB [Suspect]
     Active Substance: PONATINIB
     Indication: Chronic myeloid leukaemia (in remission)
     Dosage: 30 MILLIGRAM, QD
     Dates: start: 20220310
  3. PONATINIB [Suspect]
     Active Substance: PONATINIB
     Indication: Protein S increased
     Dosage: 15 MILLIGRAM, QD
  4. PONATINIB [Suspect]
     Active Substance: PONATINIB
     Dosage: 15 MILLIGRAM, QD
  5. PONATINIB [Suspect]
     Active Substance: PONATINIB
  6. PONATINIB [Suspect]
     Active Substance: PONATINIB
     Dosage: 15 MILLIGRAM, QD
     Dates: start: 20240111
  7. PENICILLIN [Suspect]
     Active Substance: PENICILLIN
     Indication: Product used for unknown indication
  8. METFORMIN [Concomitant]
     Active Substance: METFORMIN HYDROCHLORIDE
     Indication: Type 2 diabetes mellitus
     Dosage: 500 MILLIGRAM, BID
  9. THYROXINE [Concomitant]
     Active Substance: LEVOTHYROXINE
     Indication: Type 2 diabetes mellitus
  10. UNSPECIFIED INGREDIENT [Concomitant]
     Active Substance: UNSPECIFIED INGREDIENT
  11. MAGNESIUM OXIDE [Concomitant]
     Active Substance: MAGNESIUM OXIDE
  12. PRAVASTATIN [Concomitant]
     Active Substance: PRAVASTATIN
  13. FENOFIBRATE [Concomitant]
     Active Substance: FENOFIBRATE
  14. LEVOTHYROXINE [Concomitant]
     Active Substance: LEVOTHYROXINE
  15. LISINOPRIL [Concomitant]
     Active Substance: LISINOPRIL
  16. FAMOTIDINE [Concomitant]
     Active Substance: FAMOTIDINE
  17. CALCIUM [Concomitant]
     Active Substance: CALCIUM
     Indication: Bowel movement irregularity
  18. UNSPECIFIED INGREDIENT [Concomitant]
     Active Substance: UNSPECIFIED INGREDIENT
     Indication: Bowel movement irregularity
  19. ASPIRIN [Concomitant]
     Active Substance: ASPIRIN

REACTIONS (20)
  - Dementia [Unknown]
  - Deafness [Unknown]
  - Blindness [Unknown]
  - Drug hypersensitivity [Unknown]
  - Illness [Unknown]
  - Somnolence [Unknown]
  - Blister [Unknown]
  - Balance disorder [Recovering/Resolving]
  - Off label use [Unknown]
  - Blood glucose increased [Unknown]
  - Back pain [Recovered/Resolved]
  - Weight decreased [Unknown]
  - Dysphonia [Not Recovered/Not Resolved]
  - Decreased appetite [Unknown]
  - Vision blurred [Not Recovered/Not Resolved]
  - Rash [Not Recovered/Not Resolved]
  - Cough [Recovered/Resolved]
  - Night sweats [Unknown]
  - Arthralgia [Recovering/Resolving]
  - Constipation [Recovered/Resolved]

NARRATIVE: CASE EVENT DATE: 20220310
